FAERS Safety Report 11841119 (Version 1)
Quarter: 2015Q4

REPORT INFORMATION
  Report Type: Spontaneous
  Country: NL (occurrence: NL)
  Receive Date: 20151216
  Receipt Date: 20151216
  Transmission Date: 20160305
  Serious: Yes (Other)
  Sender: FDA-Public Use
  Company Number: NL-APOTEX-2015AP012826

PATIENT
  Sex: Male

DRUGS (1)
  1. PAXIL [Suspect]
     Active Substance: PAROXETINE HYDROCHLORIDE
     Indication: ANXIETY DISORDER
     Dosage: (2 TO 3 TABLETS PER DAY)
     Dates: start: 2000, end: 2004

REACTIONS (10)
  - Suicide attempt [Unknown]
  - Epilepsy [Unknown]
  - Aggression [Unknown]
  - Suicidal ideation [Unknown]
  - Restlessness [Unknown]
  - Headache [Unknown]
  - Cardiac disorder [Unknown]
  - Hallucination [Unknown]
  - Hyperhidrosis [Unknown]
  - Tremor [Unknown]
